FAERS Safety Report 7907174-6 (Version None)
Quarter: 2011Q4

REPORT INFORMATION
  Report Type: 
  Country: None (occurrence: None)
  Receive Date: 20111110
  Receipt Date: 20110721
  Transmission Date: 20120403
  Serious: No
  Sender: FDA-Public Use
  Company Number: US-BAYER-2011-064753

PATIENT
  Sex: Male

DRUGS (3)
  1. TYLENOL REGULAR [Concomitant]
  2. ALEVE (CAPLET) [Suspect]
     Dosage: 3 DF, HS
  3. INSULIN [Concomitant]
     Indication: DIABETES MELLITUS

REACTIONS (1)
  - NO ADVERSE EVENT [None]
